FAERS Safety Report 6546023-8 (Version None)
Quarter: 2010Q1

REPORT INFORMATION
  Report Type: 
  Country: None (occurrence: None)
  Receive Date: 20100121
  Receipt Date: 20100121
  Transmission Date: 20100710
  Serious: Yes (Hospitalization, Disabling, Other)
  Sender: FDA-Public Use
  Company Number: None

PATIENT
  Age: 49 Year
  Sex: Female
  Weight: 87.0906 kg

DRUGS (1)
  1. SAPHRIS [Suspect]
     Indication: MANIA
     Dosage: 10 MG 2 TIMES DAILY PO
     Route: 048
     Dates: start: 20100104, end: 20100108

REACTIONS (3)
  - CHEST PAIN [None]
  - EMOTIONAL DISORDER [None]
  - NERVOUSNESS [None]
